FAERS Safety Report 5140945-0 (Version None)
Quarter: 2006Q4

REPORT INFORMATION
  Report Type: 
  Country: None (occurrence: None)
  Receive Date: 20061025
  Receipt Date: 20061025
  Transmission Date: 20070319
  Serious: Yes (Hospitalization)
  Sender: FDA-Public Use
  Company Number: None

PATIENT
  Age: 78 Year
  Sex: Male
  Weight: 79.3795 kg

DRUGS (1)
  1. MEROPENEM [Suspect]
     Dosage: 500 MG IV Q 12 H
     Route: 042
     Dates: start: 20060803, end: 20060808

REACTIONS (2)
  - NEPHRITIS INTERSTITIAL [None]
  - RENAL IMPAIRMENT [None]
